FAERS Safety Report 4554823-9 (Version None)
Quarter: 2005Q1

REPORT INFORMATION
  Report Type: 
  Country: None (occurrence: None)
  Receive Date: 20041227
  Receipt Date: 20041020
  Transmission Date: 20050727
  Serious: Yes (Other)
  Sender: FDA-Public Use
  Company Number: 2004-0007485

PATIENT
  Age: 32 Year
  Sex: Female
  Weight: 59.4212 kg

DRUGS (10)
  1. VIREAD [Suspect]
     Indication: HIV INFECTION
     Dosage: 300 MG, 1 IN 1 D, ORAL
     Route: 048
     Dates: start: 20040614, end: 20040831
  2. VIDEX [Concomitant]
  3. KALETRA [Concomitant]
  4. DIFLUCAN [Concomitant]
  5. ZERIT [Concomitant]
  6. PREVACID [Concomitant]
  7. ZITHROMAX [Concomitant]
  8. ACYCLOVIR [Concomitant]
  9. DAPSONE [Concomitant]
  10. SYNTHROID [Concomitant]

REACTIONS (1)
  - RENAL FAILURE [None]
